FAERS Safety Report 7820188-X (Version None)
Quarter: 2011Q4

REPORT INFORMATION
  Report Type: 
  Country: None (occurrence: None)
  Receive Date: 20111018
  Receipt Date: 20111012
  Transmission Date: 20120403
  Serious: Yes (Other)
  Sender: FDA-Public Use
  Company Number: US-PFIZER INC-2011244979

PATIENT
  Sex: Female
  Weight: 2.948 kg

DRUGS (1)
  1. ROBITUSSIN COUGH [Suspect]

REACTIONS (4)
  - INJURY [None]
  - GAIT DISTURBANCE [None]
  - DRUG ABUSE [None]
  - DISSOCIATIVE DISORDER [None]
